APPROVED DRUG PRODUCT: CROMOPTIC
Active Ingredient: CROMOLYN SODIUM
Strength: 4%
Dosage Form/Route: SOLUTION/DROPS;OPHTHALMIC
Application: A075088 | Product #001
Applicant: KING PHARMACEUTICALS INC
Approved: Apr 27, 1999 | RLD: No | RS: No | Type: DISCN